FAERS Safety Report 9876132 (Version 1)
Quarter: 2014Q1

REPORT INFORMATION
  Report Type: Spontaneous
  Country: DE (occurrence: None)
  Receive Date: 20140204
  Receipt Date: 20140204
  Transmission Date: 20141002
  Serious: Yes (Hospitalization)
  Sender: FDA-Public Use
  Company Number: SP07466

PATIENT
  Age: 73 Year
  Sex: Female

DRUGS (1)
  1. MOVIPREP [Suspect]
     Indication: BOWEL PREPARATION
     Route: 048

REACTIONS (12)
  - Nausea [None]
  - Vomiting [None]
  - Back pain [None]
  - Acute abdomen [None]
  - Abdominal tenderness [None]
  - Abdominal distension [None]
  - Extravasation [None]
  - Oesophageal rupture [None]
  - Pneumomediastinum [None]
  - Abscess [None]
  - Oesophageal fistula [None]
  - Pyrexia [None]
